FAERS Safety Report 5265245-X (Version None)
Quarter: 2007Q1

REPORT INFORMATION
  Report Type: 
  Country: None (occurrence: None)
  Receive Date: 20061213
  Receipt Date: 20040623
  Transmission Date: 20070707
  Serious: Yes (Other)
  Sender: FDA-Public Use
  Company Number: 2004UW13030

PATIENT
  Age: 68 Year
  Sex: Male

DRUGS (1)
  1. IRESSA [Suspect]

REACTIONS (5)
  - CHILLS [None]
  - COUGH [None]
  - HEADACHE [None]
  - PYREXIA [None]
  - RASH [None]
